FAERS Safety Report 4290020-2 (Version None)
Quarter: 2004Q1

REPORT INFORMATION
  Report Type: 
  Country: None (occurrence: None)
  Receive Date: 20040209
  Receipt Date: 20040129
  Transmission Date: 20041129
  Serious: Yes (Other)
  Sender: FDA-Public Use
  Company Number: 2004-112450-NL

PATIENT
  Sex: Female

DRUGS (2)
  1. REMERON [Suspect]
  2. EFFEXOR [Concomitant]

REACTIONS (1)
  - HEPATIC FAILURE [None]
